FAERS Safety Report 13736818 (Version 1)
Quarter: 2017Q3

REPORT INFORMATION
  Report Type: Spontaneous
  Country: US (occurrence: US)
  Receive Date: 20170710
  Receipt Date: 20170710
  Transmission Date: 20171127
  Serious: Yes (Hospitalization)
  Sender: FDA-Public Use
  Company Number: None

PATIENT
  Age: 53 Year
  Sex: Male

DRUGS (9)
  1. IRON [Concomitant]
     Active Substance: IRON
  2. HYDRALAZINE [Concomitant]
     Active Substance: HYDRALAZINE HYDROCHLORIDE
  3. AMLODIPINE [Concomitant]
     Active Substance: AMLODIPINE BESYLATE
  4. METOPROLOL TARTRATE. [Concomitant]
     Active Substance: METOPROLOL TARTRATE
  5. VICODIN [Concomitant]
     Active Substance: ACETAMINOPHEN\HYDROCODONE BITARTRATE
  6. TASIGNA [Suspect]
     Active Substance: NILOTINIB
     Indication: MALIGNANT CONNECTIVE TISSUE NEOPLASM
     Dosage: 2 CAPSULES BID ORAL
     Route: 048
     Dates: start: 20170608
  7. LAXATIVE [Concomitant]
     Active Substance: UNSPECIFIED INGREDIENT
  8. MAGNESIUM [Concomitant]
     Active Substance: MAGNESIUM
  9. OXYCODONE [Concomitant]
     Active Substance: OXYCODONE

REACTIONS (2)
  - Peripheral swelling [None]
  - Swelling [None]
